FAERS Safety Report 13432851 (Version 2)
Quarter: 2017Q2

REPORT INFORMATION
  Report Type: Spontaneous
  Country: US (occurrence: US)
  Receive Date: 20170412
  Receipt Date: 20170502
  Transmission Date: 20170830
  Serious: Yes (Life-Threatening, Hospitalization, Other)
  Sender: FDA-Public Use
  Company Number: US-SA-2017SA062058

PATIENT
  Age: 61 Year
  Sex: Female

DRUGS (3)
  1. FLUOROURACIL. [Suspect]
     Active Substance: FLUOROURACIL
     Indication: COLORECTAL ADENOCARCINOMA
     Route: 065
  2. OXALIPLATIN. [Suspect]
     Active Substance: OXALIPLATIN
     Indication: COLORECTAL ADENOCARCINOMA
     Route: 065
  3. FOLINIC ACID [Suspect]
     Active Substance: LEUCOVORIN
     Indication: COLORECTAL ADENOCARCINOMA
     Route: 065

REACTIONS (23)
  - Cardiotoxicity [Recovering/Resolving]
  - Electrocardiogram abnormal [Recovering/Resolving]
  - Pulmonary arterial pressure increased [Recovering/Resolving]
  - Dyspnoea [Recovering/Resolving]
  - Troponin increased [Recovering/Resolving]
  - Left ventricular end-diastolic pressure increased [Recovering/Resolving]
  - Cardiac index decreased [Recovered/Resolved]
  - Tachypnoea [Recovering/Resolving]
  - N-terminal prohormone brain natriuretic peptide increased [Recovering/Resolving]
  - Ejection fraction decreased [Recovering/Resolving]
  - Cardiogenic shock [Recovering/Resolving]
  - Pulmonary oedema [Recovering/Resolving]
  - Pulmonary arterial wedge pressure increased [Recovering/Resolving]
  - Hyperhidrosis [Recovering/Resolving]
  - Rales [Recovering/Resolving]
  - Stress cardiomyopathy [Recovering/Resolving]
  - Mean arterial pressure decreased [Recovering/Resolving]
  - Cardiac output decreased [Recovering/Resolving]
  - Hypotension [Recovering/Resolving]
  - Echocardiogram abnormal [Recovering/Resolving]
  - Respiratory distress [Recovering/Resolving]
  - Blood lactic acid increased [Recovering/Resolving]
  - Oxygen saturation decreased [Recovering/Resolving]
